FAERS Safety Report 6591486-5 (Version None)
Quarter: 2010Q1

REPORT INFORMATION
  Report Type: 
  Country: None (occurrence: None)
  Receive Date: 20100219
  Receipt Date: 20100211
  Transmission Date: 20100710
  Serious: Yes (Hospitalization)
  Sender: FDA-Public Use
  Company Number: US-GILEAD-2010-0026918

PATIENT
  Sex: Male
  Weight: 87.168 kg

DRUGS (8)
  1. TRUVADA [Suspect]
     Indication: HIV INFECTION
     Route: 048
     Dates: start: 20091117
  2. RALTEGRAVIR [Suspect]
     Indication: HIV INFECTION
     Route: 048
     Dates: start: 20091117
  3. ASPIRIN [Suspect]
  4. PRAVASTATIN [Suspect]
  5. LISINOPRIL [Concomitant]
  6. NPH INSULIN [Concomitant]
  7. INSULIN [Concomitant]
  8. DAPSONE [Concomitant]

REACTIONS (1)
  - INFLUENZA LIKE ILLNESS [None]
